FAERS Safety Report 5390386-6 (Version None)
Quarter: 2007Q3

REPORT INFORMATION
  Report Type: 
  Country: None (occurrence: None)
  Receive Date: 20070718
  Receipt Date: 20070706
  Transmission Date: 20080115
  Serious: Yes (Other)
  Sender: FDA-Public Use
  Company Number: US-PFIZER INC-2007056046

PATIENT
  Sex: Female

DRUGS (1)
  1. REVATIO [Suspect]

REACTIONS (3)
  - DIPLOPIA [None]
  - PHOTOPSIA [None]
  - VISUAL DISTURBANCE [None]
